FAERS Safety Report 8579328-X (Version None)
Quarter: 2012Q3

REPORT INFORMATION
  Report Type: 
  Country: None (occurrence: None)
  Receive Date: 20120808
  Receipt Date: 20120803
  Transmission Date: 20120928
  Serious: Yes (Hospitalization, Other)
  Sender: FDA-Public Use
  Company Number: US-ROCHE-734089

PATIENT
  Sex: Female
  Weight: 68 kg

DRUGS (4)
  1. BIRTH CONTROL PILLS NOS [Concomitant]
  2. ACCUTANE [Suspect]
     Route: 065
     Dates: start: 20041130, end: 20050826
  3. ACCUTANE [Suspect]
     Route: 065
     Dates: start: 20020101, end: 20020101
  4. ACCUTANE [Suspect]
     Indication: ACNE
     Dosage: THERAPY FOR SIX MONTHS
     Route: 065

REACTIONS (7)
  - INFLAMMATORY BOWEL DISEASE [None]
  - DEPRESSION [None]
  - IRRITABLE BOWEL SYNDROME [None]
  - CROHN'S DISEASE [None]
  - COLONIC POLYP [None]
  - GASTROINTESTINAL INJURY [None]
  - RASH [None]
